FAERS Safety Report 5673979-8 (Version None)
Quarter: 2008Q1

REPORT INFORMATION
  Report Type: 
  Country: None (occurrence: None)
  Receive Date: 20080317
  Receipt Date: 20080307
  Transmission Date: 20080703
  Serious: Yes (Hospitalization)
  Sender: FDA-Public Use
  Company Number: 151-21880-08030522

PATIENT
  Age: 66 Year

DRUGS (2)
  1. REVLIMID [Suspect]
     Indication: MULTIPLE MYELOMA
     Dosage: 25 MG, DAILY, ORAL; 10 MG, DAILY; ORAL
     Route: 048
     Dates: start: 20080101
  2. LMWH              (HEPARIN) [Concomitant]

REACTIONS (5)
  - ANAEMIA [None]
  - INTERSTITIAL LUNG DISEASE [None]
  - MULTIPLE MYELOMA [None]
  - PULMONARY HAEMORRHAGE [None]
  - THROMBOCYTOPENIA [None]
